FAERS Safety Report 24094537 (Version 1)
Quarter: 2024Q3

REPORT INFORMATION
  Report Type: Spontaneous
  Country: US (occurrence: US)
  Receive Date: 20240716
  Receipt Date: 20240716
  Transmission Date: 20241017
  Serious: No
  Sender: APOTEX
  Company Number: US-APOTEX-2023AP016344

PATIENT
  Age: 73 Year
  Sex: Female

DRUGS (1)
  1. CARBIDOPA\LEVODOPA [Suspect]
     Active Substance: CARBIDOPA\LEVODOPA
     Indication: Parkinsonism
     Dosage: 10-100 MILLIGRAM WITH A TOTAL DAILY LEVODOPA DOSE OF 300 MILLIGRAM
     Route: 065

REACTIONS (1)
  - Vertigo [Unknown]
